FAERS Safety Report 4355725-3 (Version None)
Quarter: 2004Q2

REPORT INFORMATION
  Report Type: 
  Country: None (occurrence: None)
  Receive Date: 20040510
  Receipt Date: 20040510
  Transmission Date: 20050107
  Serious: Yes (Life-Threatening)
  Sender: FDA-Public Use
  Company Number: None

PATIENT
  Age: 48 Year
  Sex: Male

DRUGS (1)
  1. FUZEON [Suspect]
     Indication: HIV INFECTION
     Dosage: 90 MG SQ BID
     Route: 058
     Dates: start: 20040201, end: 20040314

REACTIONS (5)
  - CD4 LYMPHOCYTES INCREASED [None]
  - HEPATIC FAILURE [None]
  - PNEUMOCOCCAL SEPSIS [None]
  - RENAL FAILURE [None]
  - VIRAL LOAD DECREASED [None]
